FAERS Safety Report 4929162-4 (Version None)
Quarter: 2006Q1

REPORT INFORMATION
  Report Type: 
  Country: None (occurrence: None)
  Receive Date: 20060301
  Receipt Date: 20050930
  Transmission Date: 20060701
  Serious: Yes (Hospitalization)
  Sender: FDA-Public Use
  Company Number: PR-MERCK-0510USA00879

PATIENT
  Age: 47 Year
  Sex: Female
  Weight: 70 kg

DRUGS (1)
  1. VIOXX [Suspect]
     Indication: PAIN IN EXTREMITY
     Route: 048
     Dates: start: 20030101, end: 20040101

REACTIONS (26)
  - ANGINA PECTORIS [None]
  - ANGIOPATHY [None]
  - ARRHYTHMIA [None]
  - BRONCHITIS [None]
  - CARDIAC DISORDER [None]
  - CARDIOVASCULAR DISORDER [None]
  - CEREBROVASCULAR ACCIDENT [None]
  - CHEST PAIN [None]
  - COLITIS ULCERATIVE [None]
  - CYST [None]
  - DIABETES MELLITUS [None]
  - HEMIPARESIS [None]
  - HYPERTENSION [None]
  - INFECTION [None]
  - MYOCARDIAL INFARCTION [None]
  - NEPHROLITHIASIS [None]
  - ORGAN FAILURE [None]
  - PAIN IN EXTREMITY [None]
  - PULMONARY EMBOLISM [None]
  - PYELONEPHRITIS ACUTE [None]
  - RENAL CYST [None]
  - RENAL DISORDER [None]
  - TACHYCARDIA [None]
  - THERMAL BURN [None]
  - THROMBOSIS [None]
  - VOMITING [None]
